FAERS Safety Report 4340980-6 (Version None)
Quarter: 2004Q2

REPORT INFORMATION
  Report Type: 
  Country: None (occurrence: None)
  Receive Date: 20040413
  Receipt Date: 20040331
  Transmission Date: 20050107
  Serious: Yes (Hospitalization)
  Sender: FDA-Public Use
  Company Number: 2004AP02079

PATIENT
  Age: 45 Year
  Sex: Female
  Weight: 54 kg

DRUGS (7)
  1. ZOLADEX [Suspect]
     Indication: ENDOMETRIOSIS
     Dosage: 1.8 MG Q4WK SQ
     Dates: start: 20040116, end: 20040312
  2. ZOLADEX [Suspect]
     Indication: UTERINE LEIOMYOMA
     Dosage: 1.8 MG Q4WK SQ
     Dates: start: 20040116, end: 20040312
  3. FERROUS SULFATE TAB [Concomitant]
  4. SUPRECUR [Concomitant]
  5. ADONA [Concomitant]
  6. TRANSAMIN [Concomitant]
  7. DUOLUTON [Concomitant]

REACTIONS (1)
  - PSEUDOCYST [None]
